FAERS Safety Report 10565801 (Version 4)
Quarter: 2015Q1

REPORT INFORMATION
  Report Type: Report from Study
  Country: US (occurrence: US)
  Receive Date: 20141105
  Receipt Date: 20150211
  Transmission Date: 20150720
  Serious: Yes (Life-Threatening, Hospitalization, Other)
  Sender: FDA-Public Use
  Company Number: US-ALEXION PHARMACEUTICALS INC.-A201404135

PATIENT

DRUGS (1)
  1. SOLIRIS [Suspect]
     Active Substance: ECULIZUMAB
     Indication: PRODUCT USED FOR UNKNOWN INDICATION
     Route: 042

REACTIONS (13)
  - Unevaluable event [Unknown]
  - Blood pressure increased [Unknown]
  - Dialysis [Unknown]
  - Haemoglobin abnormal [Unknown]
  - Unevaluable event [Unknown]
  - Meningitis aseptic [Recovering/Resolving]
  - Nausea [Unknown]
  - Vomiting [Unknown]
  - Headache [Unknown]
  - Mechanical ventilation [Not Recovered/Not Resolved]
  - Migraine [Unknown]
  - Blood pressure abnormal [Unknown]
  - Diabetes mellitus [Unknown]

NARRATIVE: CASE EVENT DATE: 20141001
